FAERS Safety Report 8052751-8 (Version None)
Quarter: 2012Q1

REPORT INFORMATION
  Report Type: 
  Country: None (occurrence: None)
  Receive Date: 20120117
  Receipt Date: 20120117
  Transmission Date: 20120608
  Serious: Yes (Hospitalization)
  Sender: FDA-Public Use
  Company Number: None

PATIENT
  Age: 71 Year
  Sex: Male
  Weight: 81.2 kg

DRUGS (2)
  1. CISPLATIN [Suspect]
     Dosage: 156 MG ONVE IV
     Route: 042
     Dates: start: 20110622, end: 20110622
  2. ETOPOSIDE [Suspect]
     Dosage: 78 MG ONCE IV
     Route: 042
     Dates: start: 20110622, end: 20110623

REACTIONS (3)
  - CHEST PAIN [None]
  - DYSPNOEA [None]
  - TACHYPNOEA [None]
